FAERS Safety Report 7283611-8 (Version None)
Quarter: 2011Q1

REPORT INFORMATION
  Report Type: 
  Country: None (occurrence: None)
  Receive Date: 20110209
  Receipt Date: 20110131
  Transmission Date: 20110831
  Serious: Yes (Other)
  Sender: FDA-Public Use
  Company Number: B0696740A

PATIENT
  Age: 63 Year
  Sex: Male

DRUGS (4)
  1. ROPINIROLE [Suspect]
     Indication: PARKINSON'S DISEASE
     Route: 048
  2. LEVODOPA [Concomitant]
  3. ENTACAPONE [Concomitant]
  4. CARBIDOPA [Concomitant]

REACTIONS (4)
  - PARKINSONIAN GAIT [None]
  - HALLUCINATION, VISUAL [None]
  - MOBILITY DECREASED [None]
  - FALL [None]
